FAERS Safety Report 19453108 (Version 2)
Quarter: 2021Q2

REPORT INFORMATION
  Report Type: Report from Study
  Country: MX (occurrence: MX)
  Receive Date: 20210623
  Receipt Date: 20210625
  Transmission Date: 20210717
  Serious: Yes (Other)
  Sender: FDA-Public Use
  Company Number: MX-GLAXOSMITHKLINE-MX2021AMR134362

PATIENT
  Age: 78 Year
  Sex: Female
  Weight: 47.6 kg

DRUGS (1)
  1. NIRAPARIB [Suspect]
     Active Substance: NIRAPARIB
     Indication: OVARIAN CANCER
     Dosage: UNK
     Route: 048
     Dates: start: 202105

REACTIONS (8)
  - Intestinal obstruction [Unknown]
  - Cachexia [Unknown]
  - Eastern Cooperative Oncology Group performance status worsened [Unknown]
  - Ascites [Unknown]
  - Fluid intake reduced [Unknown]
  - Malignant neoplasm progression [Unknown]
  - General physical health deterioration [Unknown]
  - Asthenia [Unknown]

NARRATIVE: CASE EVENT DATE: 20210610
